FAERS Safety Report 5735780-6 (Version None)
Quarter: 2008Q2

REPORT INFORMATION
  Report Type: 
  Country: None (occurrence: None)
  Receive Date: 20080509
  Receipt Date: 20080509
  Transmission Date: 20081010
  Serious: Yes (Other)
  Sender: FDA-Public Use
  Company Number: None

PATIENT
  Sex: Male
  Weight: 81.6475 kg

DRUGS (2)
  1. SIMVASTATIN [Suspect]
     Indication: BLOOD CHOLESTEROL INCREASED
     Dosage: 40 MG Q DAY PO
     Route: 048
     Dates: start: 20071025, end: 20080104
  2. MALARONE [Suspect]
     Indication: MALARIA PROPHYLAXIS
     Dosage: 250 MG AND 100 MG Q DAY PO
     Route: 048
     Dates: start: 20071101, end: 20071218

REACTIONS (2)
  - ALANINE AMINOTRANSFERASE INCREASED [None]
  - ASPARTATE AMINOTRANSFERASE INCREASED [None]
